FAERS Safety Report 16959821 (Version 1)
Quarter: 2019Q4

REPORT INFORMATION
  Report Type: Spontaneous
  Country: MA (occurrence: MA)
  Receive Date: 20191025
  Receipt Date: 20191025
  Transmission Date: 20200122
  Serious: Yes (Other)
  Sender: FDA-Public Use
  Company Number: MA-SUN PHARMACEUTICAL INDUSTRIES LTD-2019R1-225401

PATIENT
  Age: 15 Year
  Sex: Female

DRUGS (1)
  1. HYDROCORTISONE. [Suspect]
     Active Substance: HYDROCORTISONE
     Indication: TRIPLE A SYNDROME
     Dosage: UNK
     Route: 065

REACTIONS (1)
  - Mycobacterium fortuitum infection [Recovering/Resolving]
